FAERS Safety Report 10208015 (Version 2)
Quarter: 2014Q2

REPORT INFORMATION
  Report Type: Spontaneous
  Country: FR (occurrence: FR)
  Receive Date: 20140530
  Receipt Date: 20140609
  Transmission Date: 20141212
  Serious: Yes (Hospitalization)
  Sender: FDA-Public Use
  Company Number: FR-SA-2014SA065135

PATIENT
  Age: 75 Year
  Sex: Female

DRUGS (5)
  1. LOVENOX [Suspect]
     Indication: PRODUCT USED FOR UNKNOWN INDICATION
     Route: 065
     Dates: start: 20140420, end: 20140430
  2. PREVISCAN [Suspect]
     Indication: ATRIAL TACHYCARDIA
     Route: 065
     Dates: start: 20140422, end: 20140429
  3. AUGMENTIN [Concomitant]
     Indication: LUNG DISORDER
  4. DIGOXINE [Concomitant]
     Indication: ATRIAL TACHYCARDIA
  5. BETA BLOCKING AGENTS [Concomitant]

REACTIONS (6)
  - Shock haemorrhagic [Recovered/Resolved]
  - Hypotension [Recovered/Resolved]
  - Heart rate decreased [Recovered/Resolved]
  - Melaena [Recovered/Resolved]
  - Haematemesis [Recovered/Resolved]
  - International normalised ratio increased [Recovered/Resolved]
